FAERS Safety Report 4456764-4 (Version None)
Quarter: 2004Q3

REPORT INFORMATION
  Report Type: 
  Country: None (occurrence: None)
  Receive Date: 20040921
  Receipt Date: 20040908
  Transmission Date: 20050211
  Serious: Yes (Death)
  Sender: FDA-Public Use
  Company Number: K200401364

PATIENT
  Age: 16 Year
  Sex: Male

DRUGS (1)
  1. ADRENALIN IN OIL INJ [Suspect]
     Indication: PRIAPISM
     Dosage: 4 MG, INTRACAVERNOUS
     Route: 017

REACTIONS (2)
  - CARDIO-RESPIRATORY ARREST [None]
  - MEDICATION ERROR [None]
